FAERS Safety Report 5903668-3 (Version None)
Quarter: 2008Q3

REPORT INFORMATION
  Report Type: 
  Country: None (occurrence: None)
  Receive Date: 20080930
  Receipt Date: 20080922
  Transmission Date: 20090109
  Serious: Yes (Hospitalization)
  Sender: FDA-Public Use
  Company Number: ES-PFIZER INC-2008079285

PATIENT
  Age: 83 Year
  Sex: Female

DRUGS (6)
  1. CARDYL [Suspect]
     Route: 048
     Dates: start: 20000101
  2. DIGOXIN [Interacting]
     Route: 048
     Dates: start: 20000101, end: 20070319
  3. INSULIN [Concomitant]
  4. SEGURIL [Concomitant]
  5. BLOKIUM [Concomitant]
  6. SINTROM [Concomitant]

REACTIONS (6)
  - ABDOMINAL PAIN [None]
  - DIARRHOEA [None]
  - DRUG INTERACTION [None]
  - RETCHING [None]
  - THERAPEUTIC AGENT TOXICITY [None]
  - VOMITING [None]
